FAERS Safety Report 9399767 (Version 4)
Quarter: 2014Q1

REPORT INFORMATION
  Report Type: Spontaneous
  Country: US (occurrence: US)
  Receive Date: 20130715
  Receipt Date: 20140305
  Transmission Date: 20141002
  Serious: Yes (Life-Threatening, Hospitalization, Other)
  Sender: FDA-Public Use
  Company Number: US-BAYER-2013-081789

PATIENT
  Age: 25 Year
  Sex: Female
  Weight: 61.22 kg

DRUGS (6)
  1. MIRENA [Suspect]
     Indication: CONTRACEPTION
     Dosage: 20 MCG/24HR, CONT
     Route: 015
     Dates: start: 20091102, end: 20110817
  2. MIRENA [Suspect]
     Indication: CONTRACEPTION
     Dosage: 20 MCG/24HR, CONT
     Route: 015
     Dates: start: 2008, end: 2008
  3. MORPHINE [Concomitant]
     Indication: PAIN
     Dosage: 2 MG, UNK
     Route: 042
     Dates: start: 20110518
  4. MORPHINE [Concomitant]
     Indication: ABDOMINAL PAIN
  5. SCOPOLAMINE [Concomitant]
     Dosage: UNK
     Route: 061
     Dates: start: 20110518
  6. PHENERGAN [Concomitant]
     Indication: NAUSEA
     Dosage: 6.25 MG, UNK
     Route: 042
     Dates: start: 20110518

REACTIONS (12)
  - Uterine perforation [None]
  - Abortion spontaneous [None]
  - Injury [None]
  - Pain [None]
  - General physical health deterioration [None]
  - Pregnancy with contraceptive device [None]
  - Drug ineffective [None]
  - Device difficult to use [None]
  - Anxiety [None]
  - Anhedonia [None]
  - Depression [None]
  - Device issue [None]
